FAERS Safety Report 19808513 (Version 3)
Quarter: 2022Q2

REPORT INFORMATION
  Report Type: Spontaneous
  Country: NL (occurrence: NL)
  Receive Date: 20210908
  Receipt Date: 20220414
  Transmission Date: 20220721
  Serious: Yes (Hospitalization, Other)
  Sender: FDA-Public Use
  Company Number: NL-GILEAD-2020-0501208

PATIENT
  Sex: Male
  Weight: 106 kg

DRUGS (83)
  1. METHYLPREDNISOLONE SODIUM SUCCINATE [Suspect]
     Active Substance: METHYLPREDNISOLONE SODIUM SUCCINATE
     Dosage: 1000 MG, 1X/DAY
     Route: 042
     Dates: start: 20201024, end: 20201026
  2. METHYLPREDNISOLONE SODIUM SUCCINATE [Suspect]
     Active Substance: METHYLPREDNISOLONE SODIUM SUCCINATE
     Dosage: 1000 MG, 1X/DAY
     Route: 042
     Dates: start: 20201109, end: 20201109
  3. METHYLPREDNISOLONE SODIUM SUCCINATE [Suspect]
     Active Substance: METHYLPREDNISOLONE SODIUM SUCCINATE
     Dosage: 500 MG, 1X/DAY
     Route: 042
     Dates: start: 20201110, end: 20201110
  4. METHYLPREDNISOLONE SODIUM SUCCINATE [Suspect]
     Active Substance: METHYLPREDNISOLONE SODIUM SUCCINATE
     Dosage: 250 MG, 1X/DAY
     Route: 042
     Dates: start: 20201111, end: 20201111
  5. CYCLOPHOSPHAMIDE [Suspect]
     Active Substance: CYCLOPHOSPHAMIDE
     Indication: Bone marrow conditioning regimen
     Route: 042
  6. CARBOPLATIN [Suspect]
     Active Substance: CARBOPLATIN
     Indication: Mantle cell lymphoma
     Dosage: UNK
     Route: 065
  7. MESNA [Suspect]
     Active Substance: MESNA
     Indication: Prophylaxis
     Dosage: UNK
     Route: 042
  8. FLUDARABINE [Suspect]
     Active Substance: FLUDARABINE PHOSPHATE
     Indication: Bone marrow conditioning regimen
     Dosage: UNK
     Route: 042
  9. DEXAMETHASONE [Suspect]
     Active Substance: DEXAMETHASONE
     Indication: Neurotoxicity
     Dosage: 10 MG, 4X/DAY (EVERY 6H)
     Route: 042
     Dates: start: 20201023, end: 20201024
  10. DEXAMETHASONE [Suspect]
     Active Substance: DEXAMETHASONE
     Dosage: 10 MG, 3X/DAY (EVERY 8H)
     Route: 042
     Dates: start: 20201102, end: 20201108
  11. DEXAMETHASONE [Suspect]
     Active Substance: DEXAMETHASONE
     Dosage: 10 MG, 1X/DAY
     Route: 048
     Dates: start: 20201022, end: 20201022
  12. DEXAMETHASONE [Suspect]
     Active Substance: DEXAMETHASONE
     Dosage: 10 MG, 1X/DAY
     Route: 042
     Dates: start: 20201021, end: 20201021
  13. DEXAMETHASONE [Suspect]
     Active Substance: DEXAMETHASONE
     Dosage: 10 MG, 4X/DAY (EVERY 4H)
     Route: 042
     Dates: start: 20201026, end: 20201102
  14. DEXAMETHASONE [Suspect]
     Active Substance: DEXAMETHASONE
     Dosage: 10 MG, DAILY
     Route: 042
     Dates: start: 20201022, end: 20201023
  15. DEXAMETHASONE [Suspect]
     Active Substance: DEXAMETHASONE
     Dosage: 10 MG, 3X/DAY
     Route: 042
     Dates: start: 20201103
  16. DEXAMETHASONE [Suspect]
     Active Substance: DEXAMETHASONE
     Dosage: 10 MG, 4X/DAY
     Route: 042
     Dates: start: 20201023, end: 20201024
  17. DEXAMETHASONE [Suspect]
     Active Substance: DEXAMETHASONE
     Dosage: UNK
  18. AXICABTAGENE CILOLEUCEL [Suspect]
     Active Substance: AXICABTAGENE CILOLEUCEL
     Indication: Mantle cell lymphoma
     Dosage: UNK
     Route: 042
     Dates: start: 20201016, end: 20201016
  19. INSULIN GLARGINE [Suspect]
     Active Substance: INSULIN GLARGINE
     Dosage: UNK
     Route: 058
     Dates: start: 20201026, end: 20201103
  20. INSULIN GLARGINE [Suspect]
     Active Substance: INSULIN GLARGINE
     Dosage: 50 IU, 1X/DAY
     Route: 058
     Dates: start: 20201106, end: 20201108
  21. INSULIN GLARGINE [Suspect]
     Active Substance: INSULIN GLARGINE
     Dosage: 15 IU, 1X/DAY
     Route: 058
     Dates: start: 20201113, end: 20201113
  22. INSULIN GLARGINE [Suspect]
     Active Substance: INSULIN GLARGINE
     Dosage: 5 IU, 1X/DAY
     Route: 058
     Dates: start: 20201115, end: 20210114
  23. INSULIN GLARGINE [Suspect]
     Active Substance: INSULIN GLARGINE
     Dosage: 20 IU, 1X/DAY
     Route: 058
     Dates: start: 20201111, end: 20201112
  24. INSULIN GLARGINE [Suspect]
     Active Substance: INSULIN GLARGINE
     Dosage: 10 IU, 1X/DAY
     Route: 058
     Dates: start: 20201114, end: 20201114
  25. INSULIN GLARGINE [Suspect]
     Active Substance: INSULIN GLARGINE
     Dosage: 30 IU, DAILY
     Route: 058
     Dates: start: 20201103, end: 20201103
  26. INSULIN GLARGINE [Suspect]
     Active Substance: INSULIN GLARGINE
     Dosage: 20 IU, DAILY
     Route: 058
     Dates: start: 20201026, end: 20201029
  27. INSULIN GLARGINE [Suspect]
     Active Substance: INSULIN GLARGINE
     Dosage: 24 IU, DAILY
     Route: 058
     Dates: start: 20201103, end: 20201103
  28. INSULIN GLARGINE [Suspect]
     Active Substance: INSULIN GLARGINE
     Dosage: 16 IU, DAILY
     Route: 058
     Dates: start: 20201030, end: 20201031
  29. BACTRIM [Suspect]
     Active Substance: SULFAMETHOXAZOLE\TRIMETHOPRIM
  30. BREXUCABTAGENE AUTOLEUCEL [Suspect]
     Active Substance: BREXUCABTAGENE AUTOLEUCEL
     Indication: Mantle cell lymphoma
     Dosage: UNK
     Route: 042
     Dates: start: 20201016, end: 20201016
  31. MODERNA COVID-19 VACCINE [Concomitant]
     Active Substance: ELASOMERAN
     Dosage: UNK
     Dates: start: 20210430, end: 20210430
  32. PANTOPRAZOLE [Concomitant]
     Active Substance: PANTOPRAZOLE
     Dosage: 40 MG, 1X/DAY
     Route: 048
     Dates: start: 20201010, end: 20201024
  33. PANTOPRAZOLE [Concomitant]
     Active Substance: PANTOPRAZOLE
     Dosage: 40 MG, 1X/DAY
     Route: 048
     Dates: start: 20201112
  34. NOREPINEPHRINE [Concomitant]
     Active Substance: NOREPINEPHRINE
     Dosage: UNK
     Route: 042
     Dates: start: 20201024, end: 20201024
  35. METOCLOPRAMIDE [Concomitant]
     Active Substance: METOCLOPRAMIDE
     Dosage: 10 MG, 3X/DAY (EVERY 8H)
     Dates: start: 20201021
  36. ONDANSETRON [Concomitant]
     Active Substance: ONDANSETRON
     Dosage: 8 MG, 2X/DAY(EVERY 12H)
     Route: 048
     Dates: start: 20201009, end: 20201019
  37. CIPROFLOXACIN [Concomitant]
     Active Substance: CIPROFLOXACIN
     Dosage: 500 MG, 2X/DAY (EVERY 12H)
     Route: 048
     Dates: start: 20201024, end: 20201025
  38. CIPROFLOXACIN [Concomitant]
     Active Substance: CIPROFLOXACIN
     Dosage: 400 MG, 2X/DAY (EVERY12H)
     Route: 042
     Dates: start: 20201025, end: 20201028
  39. ESOMEPRAZOLE [Concomitant]
     Active Substance: ESOMEPRAZOLE
     Dosage: 1 MG, 1X/DAY
     Route: 048
     Dates: start: 20201111, end: 20201112
  40. ESOMEPRAZOLE [Concomitant]
     Active Substance: ESOMEPRAZOLE
     Dosage: 40 MG, 1X/DAY
     Route: 042
     Dates: start: 20201025
  41. ALLOPURINOL [Concomitant]
     Active Substance: ALLOPURINOL
     Dosage: 300 MG, 1X/DAY
     Route: 048
     Dates: start: 20201016, end: 20201020
  42. LEVETIRACETAM [Concomitant]
     Active Substance: LEVETIRACETAM
     Dosage: 500 MG, 2X/DAY (EVERY 12H)
     Route: 048
     Dates: start: 20201114, end: 20201118
  43. LEVETIRACETAM [Concomitant]
     Active Substance: LEVETIRACETAM
     Dosage: 500 MG, 2X/DAY (EVERY 12H)
     Route: 042
     Dates: start: 20201025, end: 20201114
  44. CEFTRIAXONE [Concomitant]
     Active Substance: CEFTRIAXONE
     Dosage: 2000 MG, 2X/DAY
     Route: 042
     Dates: start: 20201013, end: 20201013
  45. CEFTRIAXONE [Concomitant]
     Active Substance: CEFTRIAXONE
     Dosage: 2000 MG, 2X/DAY
     Route: 042
     Dates: start: 20201021, end: 20201021
  46. CEFTRIAXONE [Concomitant]
     Active Substance: CEFTRIAXONE
     Dosage: 2000 MG, 2X/DAY
     Route: 042
     Dates: start: 20201109, end: 20201111
  47. SULFAMETHOXAZOLE\TRIMETHOPRIM [Concomitant]
     Active Substance: SULFAMETHOXAZOLE\TRIMETHOPRIM
     Dosage: 480 MG, 1X/DAY
     Route: 042
     Dates: start: 20201025, end: 20201110
  48. SULFAMETHOXAZOLE\TRIMETHOPRIM [Concomitant]
     Active Substance: SULFAMETHOXAZOLE\TRIMETHOPRIM
     Dosage: 480 MG, 1X/DAY
     Route: 048
     Dates: start: 20201115
  49. SULFAMETHOXAZOLE\TRIMETHOPRIM [Concomitant]
     Active Substance: SULFAMETHOXAZOLE\TRIMETHOPRIM
     Dosage: UNK
     Route: 048
     Dates: start: 20201013
  50. SULFAMETHOXAZOLE\TRIMETHOPRIM [Concomitant]
     Active Substance: SULFAMETHOXAZOLE\TRIMETHOPRIM
     Dosage: 480 MG, 1X/DAY
     Dates: start: 20201111, end: 20201114
  51. SULFAMETHOXAZOLE\TRIMETHOPRIM [Concomitant]
     Active Substance: SULFAMETHOXAZOLE\TRIMETHOPRIM
     Dosage: 480 MG, 1X/DAY
     Route: 048
     Dates: start: 20201115
  52. SULFAMETHOXAZOLE\TRIMETHOPRIM [Concomitant]
     Active Substance: SULFAMETHOXAZOLE\TRIMETHOPRIM
     Dosage: 480 MG, 1X/DAY
     Route: 048
     Dates: start: 20210709
  53. NADROPARIN [Concomitant]
     Active Substance: NADROPARIN
     Dosage: 2850 IU, 1X/DAY
     Route: 058
     Dates: start: 20201024
  54. HALOPERIDOL [Concomitant]
     Active Substance: HALOPERIDOL
     Dosage: 2.5 MG, 2X/DAY
     Route: 042
     Dates: start: 20201109, end: 20201109
  55. HALOPERIDOL [Concomitant]
     Active Substance: HALOPERIDOL
     Dosage: 1 MG, 1X/DAY
     Route: 042
     Dates: start: 20201107, end: 20201108
  56. HALOPERIDOL [Concomitant]
     Active Substance: HALOPERIDOL
     Dosage: UNK
     Route: 048
     Dates: start: 20201025, end: 20201102
  57. HALOPERIDOL [Concomitant]
     Active Substance: HALOPERIDOL
     Dosage: 1 MG, 2X/DAY
     Route: 042
     Dates: start: 20201112, end: 20201115
  58. HALOPERIDOL [Concomitant]
     Active Substance: HALOPERIDOL
     Dosage: 1 MG, 1X/DAY
     Route: 048
     Dates: start: 20201116, end: 20201116
  59. HALOPERIDOL [Concomitant]
     Active Substance: HALOPERIDOL
     Dosage: 0.5 MG, 1X/DAY
     Route: 048
     Dates: start: 20201117, end: 20201117
  60. HALOPERIDOL [Concomitant]
     Active Substance: HALOPERIDOL
     Dosage: 0.5 MG, DAILY
     Route: 048
     Dates: start: 20201025, end: 20201026
  61. HALOPERIDOL [Concomitant]
     Active Substance: HALOPERIDOL
     Dosage: 1 MG, 2X/DAY
     Route: 042
     Dates: start: 20201031, end: 20201102
  62. HALOPERIDOL [Concomitant]
     Active Substance: HALOPERIDOL
     Dosage: 1 MG, DAILY
     Route: 048
     Dates: start: 20201026, end: 20201027
  63. GENTAMICIN [Concomitant]
     Active Substance: GENTAMICIN
     Dosage: 440 MG, SINGLE
     Route: 042
     Dates: start: 20201021, end: 20201021
  64. FLUCONAZOLE [Concomitant]
     Active Substance: FLUCONAZOLE
     Dosage: 50 MG, 1X/DAY
     Route: 042
     Dates: start: 20201025, end: 20201110
  65. FLUCONAZOLE [Concomitant]
     Active Substance: FLUCONAZOLE
     Dosage: 50 MG, 1X/DAY
     Dates: start: 20201111, end: 20201112
  66. FLUCONAZOLE [Concomitant]
     Active Substance: FLUCONAZOLE
     Dosage: 50 MG, 1X/DAY
     Route: 048
     Dates: start: 20201113, end: 20201119
  67. CEFTAZIDIME [Concomitant]
     Active Substance: CEFTAZIDIME
     Dosage: 2000 MG, 3X/DAY
     Dates: start: 20201017, end: 20201024
  68. SODIUM PHOSPHATE [Concomitant]
     Active Substance: SODIUM PHOSPHATE
     Dosage: 30 MMOL, 2X/DAY
     Route: 048
     Dates: start: 20201022, end: 20201022
  69. SODIUM PHOSPHATE [Concomitant]
     Active Substance: SODIUM PHOSPHATE
     Dosage: 30 MMOL, (EVERY 12H)
     Route: 048
     Dates: start: 20201102, end: 20201103
  70. SODIUM PHOSPHATE [Concomitant]
     Active Substance: SODIUM PHOSPHATE
     Dosage: 30 MMOL, SINGLE
     Route: 048
     Dates: start: 20201023, end: 20201023
  71. INSULIN ASPART [Concomitant]
     Active Substance: INSULIN ASPART
     Dosage: UNK
     Route: 058
     Dates: start: 20201022, end: 20201027
  72. INSULIN ASPART [Concomitant]
     Active Substance: INSULIN ASPART
     Dosage: 10 IU
     Route: 042
     Dates: start: 20201024, end: 20201024
  73. INSULIN ASPART [Concomitant]
     Active Substance: INSULIN ASPART
     Dosage: 1 DF, AS NEEDED (UNK; 2-6 IU)
     Route: 058
     Dates: start: 20201027, end: 20201109
  74. INSULIN ASPART [Concomitant]
     Active Substance: INSULIN ASPART
     Dosage: UNK
     Dates: start: 20201109, end: 20201111
  75. INSULIN ASPART [Concomitant]
     Active Substance: INSULIN ASPART
     Dosage: 1 DF, AS NEEDED
     Route: 058
     Dates: start: 20201111, end: 20210114
  76. INSULIN ASPART [Concomitant]
     Active Substance: INSULIN ASPART
     Dosage: 0-100 IU/HOUR; CONTINUOUS
     Route: 042
  77. CLEMASTINE [Concomitant]
     Active Substance: CLEMASTINE
     Dosage: 2 MG, SINGLE (ONCE)
     Route: 042
     Dates: start: 20201016, end: 20201016
  78. VALACYCLOVIR HYDROCHLORIDE [Concomitant]
     Active Substance: VALACYCLOVIR HYDROCHLORIDE
     Dosage: 500 MG, 2X/DAY (EVERY 12H)
     Route: 048
     Dates: start: 20201009, end: 20201024
  79. VALACYCLOVIR HYDROCHLORIDE [Concomitant]
     Active Substance: VALACYCLOVIR HYDROCHLORIDE
     Dosage: 260 MG, 2X/DAY (EVERY 12H)
     Dates: start: 20201110, end: 20201112
  80. VALACYCLOVIR HYDROCHLORIDE [Concomitant]
     Active Substance: VALACYCLOVIR HYDROCHLORIDE
     Dosage: 500 MG, 2X/DAY (EVERY 12H)
     Route: 048
     Dates: start: 20201112
  81. CALCIUM GLUCONATE [Concomitant]
     Active Substance: CALCIUM GLUCONATE
     Dosage: 1000 MG, SINGLE
     Route: 042
     Dates: start: 20201024, end: 20201024
  82. METFORMIN [Concomitant]
     Active Substance: METFORMIN HYDROCHLORIDE
     Indication: Diabetes mellitus
     Dosage: 1000 MG, 2X/DAY
     Route: 048
     Dates: start: 20201111
  83. CARBASPIRIN CALCIUM [Concomitant]
     Active Substance: CARBASPIRIN CALCIUM
     Dosage: 100 MG, 1X/DAY
     Route: 048
     Dates: start: 20210706

REACTIONS (30)
  - Delirium [Recovered/Resolved]
  - Hypothalamo-pituitary disorder [Recovered/Resolved]
  - Cognitive disorder [Recovered/Resolved]
  - Neurotoxicity [Recovered/Resolved]
  - Sinus bradycardia [Recovered/Resolved]
  - Cytokine release syndrome [Recovered/Resolved]
  - Hyponatraemia [Recovered/Resolved]
  - Neutrophil count decreased [Recovered/Resolved]
  - Acute kidney injury [Recovered/Resolved]
  - Febrile neutropenia [Recovered/Resolved]
  - Urinary retention [Recovered/Resolved]
  - Platelet count decreased [Not Recovered/Not Resolved]
  - Hyperkalaemia [Recovered/Resolved]
  - Haematuria [Not Recovered/Not Resolved]
  - Haemolytic anaemia [Not Recovered/Not Resolved]
  - Herpes zoster reactivation [Recovered/Resolved]
  - Diarrhoea [Not Recovered/Not Resolved]
  - Folliculitis [Recovered/Resolved]
  - Myalgia [Recovered/Resolved]
  - Herpes zoster reactivation [Not Recovered/Not Resolved]
  - Lymphocyte count decreased [Not Recovered/Not Resolved]
  - Hypotension [Recovered/Resolved]
  - Scrotal pain [Recovered/Resolved]
  - Chills [Recovered/Resolved]
  - Malaise [Recovered/Resolved]
  - Malaise [Recovered/Resolved]
  - Neutrophil count decreased [Not Recovered/Not Resolved]
  - Pyrexia [Recovered/Resolved]
  - Fatigue [Recovered/Resolved]
  - Fatigue [Recovered/Resolved]

NARRATIVE: CASE EVENT DATE: 20201009
